FAERS Safety Report 6657692-6 (Version None)
Quarter: 2010Q1

REPORT INFORMATION
  Report Type: 
  Country: None (occurrence: None)
  Receive Date: 20100330
  Receipt Date: 20100322
  Transmission Date: 20100710
  Serious: Yes (Other)
  Sender: FDA-Public Use
  Company Number: US-PURDUE-USA-2010-0041785

PATIENT
  Age: 39 Year
  Sex: Female

DRUGS (1)
  1. COLACE CAPSULES 100 MG [Suspect]
     Indication: CONSTIPATION
     Dosage: 100 MG, SEE TEXT
     Dates: start: 20090101, end: 20091001

REACTIONS (8)
  - ALOPECIA [None]
  - AMNESIA [None]
  - DECREASED APPETITE [None]
  - FEELING ABNORMAL [None]
  - FREQUENT BOWEL MOVEMENTS [None]
  - HALLUCINATION [None]
  - NAIL GROWTH ABNORMAL [None]
  - WEIGHT DECREASED [None]
